FAERS Safety Report 4589385-3 (Version None)
Quarter: 2005Q1

REPORT INFORMATION
  Report Type: 
  Country: None (occurrence: None)
  Receive Date: 20050216
  Receipt Date: 20050203
  Transmission Date: 20050727
  Serious: Yes (Death)
  Sender: FDA-Public Use
  Company Number: A01200500608

PATIENT
  Age: 65 Year
  Sex: Female

DRUGS (7)
  1. PLAVIX [Suspect]
     Indication: ANGINA UNSTABLE
     Dosage: 75 MG OD
     Route: 048
     Dates: start: 20041011
  2. METOPROLOL [Concomitant]
  3. QUINAPRIL [Concomitant]
  4. SIMVASTATIN [Concomitant]
  5. NITROGLYCERIN [Concomitant]
  6. ACETYLSALICYLIC ACID [Concomitant]
  7. NORFLOXACIN [Concomitant]

REACTIONS (1)
  - ARTERIOGRAM CORONARY [None]
